FAERS Safety Report 15826121 (Version 1)
Quarter: 2019Q1

REPORT INFORMATION
  Report Type: Spontaneous
  Country: US (occurrence: US)
  Receive Date: 20190115
  Receipt Date: 20190115
  Transmission Date: 20190417
  Serious: Yes (Hospitalization)
  Sender: FDA-Public Use
  Company Number: None

PATIENT
  Age: 68 Year
  Sex: Female

DRUGS (11)
  1. FARYDAK [Suspect]
     Active Substance: PANOBINOSTAT
     Indication: PLASMA CELL MYELOMA
     Dosage: ?          OTHER FREQUENCY:TIW;?
     Route: 048
     Dates: start: 20180508
  2. POMALYST [Concomitant]
     Active Substance: POMALIDOMIDE
  3. LATANOPROST. [Concomitant]
     Active Substance: LATANOPROST
  4. OMEPRAZOLE. [Concomitant]
     Active Substance: OMEPRAZOLE
  5. ENOXAPARIN [Concomitant]
     Active Substance: ENOXAPARIN
  6. LORATADINE. [Concomitant]
     Active Substance: LORATADINE
  7. WARFARIN [Concomitant]
     Active Substance: WARFARIN
  8. POT CL MICRO [Concomitant]
  9. PREDNISONE. [Concomitant]
     Active Substance: PREDNISONE
  10. LISINOPRIL. [Concomitant]
     Active Substance: LISINOPRIL
  11. FUROSEMIDE. [Concomitant]
     Active Substance: FUROSEMIDE

REACTIONS (1)
  - Intestinal obstruction [None]

NARRATIVE: CASE EVENT DATE: 20190111
